FAERS Safety Report 7324692-2 (Version None)
Quarter: 2011Q1

REPORT INFORMATION
  Report Type: 
  Country: None (occurrence: None)
  Receive Date: 20110301
  Receipt Date: 20110222
  Transmission Date: 20110831
  Serious: Yes (Other)
  Sender: FDA-Public Use
  Company Number: CHPA2011US03130

PATIENT
  Age: 60 Year
  Sex: Female

DRUGS (3)
  1. PRILOSEC [Concomitant]
  2. VOLTAREN [Suspect]
     Dosage: 2 G, ONCE A DAY
     Route: 061
  3. CELEXA [Concomitant]

REACTIONS (4)
  - INSOMNIA [None]
  - OFF LABEL USE [None]
  - DRUG ADMINISTERED AT INAPPROPRIATE SITE [None]
  - ANOSMIA [None]
